FAERS Safety Report 23236036 (Version 1)
Quarter: 2023Q4

REPORT INFORMATION
  Report Type: Report from Study
  Country: EG (occurrence: EG)
  Receive Date: 20231128
  Receipt Date: 20231128
  Transmission Date: 20240110
  Serious: Yes (Other)
  Sender: FDA-Public Use
  Company Number: EG-002147023-NVSC2023EG249362

PATIENT
  Sex: Female

DRUGS (4)
  1. GILENYA [Suspect]
     Active Substance: FINGOLIMOD HYDROCHLORIDE
     Indication: Multiple sclerosis
     Dosage: 1 DOSAGE FORM, QD, STARTED 3 YEARS AGO
     Route: 048
     Dates: start: 2020
  2. GILENYA [Suspect]
     Active Substance: FINGOLIMOD HYDROCHLORIDE
     Dosage: 1 DOSAGE FORM, QOD, STOPPED ONE YEAR AGO
     Route: 048
  3. RITUXIMAB [Suspect]
     Active Substance: RITUXIMAB
     Indication: Product used for unknown indication
     Dosage: UNK
     Route: 065
  4. SOLU-MEDROL [Concomitant]
     Active Substance: METHYLPREDNISOLONE SODIUM SUCCINATE
     Indication: Product used for unknown indication
     Dosage: 5 DOSAGE FORM
     Route: 065

REACTIONS (9)
  - Hyperthyroidism [Unknown]
  - Hypothyroidism [Unknown]
  - Insulin resistance [Unknown]
  - Tachycardia [Unknown]
  - Hypotension [Not Recovered/Not Resolved]
  - White blood cell count decreased [Unknown]
  - Hypertension [Unknown]
  - Decreased immune responsiveness [Unknown]
  - Off label use [Unknown]

NARRATIVE: CASE EVENT DATE: 20200101
